FAERS Safety Report 7537388-9 (Version None)
Quarter: 2011Q2

REPORT INFORMATION
  Report Type: 
  Country: None (occurrence: None)
  Receive Date: 20110603
  Receipt Date: 20110518
  Transmission Date: 20111010
  Serious: Yes (Disabling)
  Sender: FDA-Public Use
  Company Number: 2011MA006071

PATIENT
  Age: 22 Year
  Sex: Male

DRUGS (1)
  1. MIRTAZAPINE [Suspect]
     Indication: DEPRESSION
     Dosage: 30 MG;QD

REACTIONS (4)
  - SUDDEN HEARING LOSS [None]
  - DEAFNESS UNILATERAL [None]
  - TINNITUS [None]
  - DEAFNESS NEUROSENSORY [None]
